FAERS Safety Report 7501114-X (Version None)
Quarter: 2011Q2

REPORT INFORMATION
  Report Type: 
  Country: None (occurrence: None)
  Receive Date: 20110524
  Receipt Date: 20110511
  Transmission Date: 20111010
  Serious: Yes (Other)
  Sender: FDA-Public Use
  Company Number: US-UCBSA-031465

PATIENT
  Sex: Female
  Weight: 89.81 kg

DRUGS (12)
  1. VITAMIN B-12 [Concomitant]
     Indication: MEDICAL DIET
     Dosage: DOSE : 1 CC  ROUTE: INJECTED
  2. CELEBREX [Concomitant]
     Indication: INFLAMMATION
     Route: 048
     Dates: start: 20110301
  3. LOVAZA [Concomitant]
     Indication: MEDICAL DIET
     Route: 048
  4. CIMZIA [Suspect]
     Indication: PSORIATIC ARTHROPATHY
     Dosage: DOSE : 2 SHOTS OF 1CC
     Route: 058
     Dates: start: 20101001, end: 20110228
  5. SYNTHROID [Concomitant]
     Indication: AUTOIMMUNE THYROIDITIS
     Dosage: STATRED : AGE 27
     Route: 048
  6. HYZAAR [Concomitant]
     Indication: HYPERTENSION
     Route: 048
  7. TURMERIC TABS [Concomitant]
     Indication: MEDICAL DIET
     Dosage: DOSE: 2 TABS
     Route: 048
  8. LORTAB [Concomitant]
     Indication: ARTHRITIS
     Dosage: DOSE : 5/500 MG  PRN Q 6 HOURS
     Route: 048
  9. FOLIC ACID [Concomitant]
     Indication: MEDICAL DIET
     Route: 048
  10. PREDNISONE [Concomitant]
     Indication: INFLAMMATION
     Route: 048
     Dates: start: 20110301
  11. CIMZIA [Suspect]
     Indication: RHEUMATOID ARTHRITIS
     Dosage: DOSE : 2 SHOTS OF 1CC
     Route: 058
     Dates: start: 20101001, end: 20110228
  12. SINGULAIR [Concomitant]
     Indication: DYSPNOEA
     Dosage: DOSE : ONE HS
     Route: 048
     Dates: start: 20110301

REACTIONS (10)
  - CHEST DISCOMFORT [None]
  - DYSPNOEA [None]
  - PALPITATIONS [None]
  - THYROID FUNCTION TEST ABNORMAL [None]
  - SKIN LESION [None]
  - FATIGUE [None]
  - OESOPHAGEAL SPASM [None]
  - APHTHOUS STOMATITIS [None]
  - PARAESTHESIA [None]
  - HYPERTENSION [None]
